FAERS Safety Report 14433026 (Version 1)
Quarter: 2018Q1

REPORT INFORMATION
  Report Type: Report from Study
  Country: US (occurrence: US)
  Receive Date: 20180124
  Receipt Date: 20180124
  Transmission Date: 20180509
  Serious: Yes (Other)
  Sender: FDA-Public Use
  Company Number: US-CIPLA LTD.-2018US01253

PATIENT

DRUGS (7)
  1. SODIUM CHLORIDE. [Concomitant]
     Active Substance: SODIUM CHLORIDE
     Indication: PROPHYLAXIS AGAINST DEHYDRATION
     Dosage: 1 L, OVER 1-3 HOURS PRE-INFUSION
     Route: 065
  2. DIPHENHYDRAMINE. [Concomitant]
     Active Substance: DIPHENHYDRAMINE
     Indication: ANAPHYLAXIS PROPHYLAXIS
     Dosage: 50 MG, 30 MINUTES PRIOR TO ADMINISTRATION OF NC-6004
     Route: 042
  3. SODIUM CHLORIDE. [Concomitant]
     Active Substance: SODIUM CHLORIDE
     Dosage: 500 ML, OVER 2 HOURS POST INFUSION
     Route: 065
  4. DEXAMETHASONE. [Concomitant]
     Active Substance: DEXAMETHASONE
     Indication: ANAPHYLAXIS PROPHYLAXIS
     Dosage: 20 MG, 12 AND 6 HOURS PRIOR TO NC-6004
     Route: 048
  5. GEMCITABINE [Suspect]
     Active Substance: GEMCITABINE\GEMCITABINE HYDROCHLORIDE
     Indication: NEOPLASM
     Dosage: 1250 MG/M2, ON DAYS 1 AND 8 EVERY 3 WEEKS
     Route: 042
  6. DEXAMETHASONE. [Concomitant]
     Active Substance: DEXAMETHASONE
     Dosage: 4 MG, BID, FOR 2 DAYS AFTER THE END OF INFUSION
     Route: 048
  7. CISPLATIN. [Suspect]
     Active Substance: CISPLATIN
     Indication: NEOPLASM
     Dosage: UNK, 60 TO 180 MG/M2 ON DAY 1 OF EACH 21-DAY CYCLE
     Route: 042

REACTIONS (1)
  - Haematotoxicity [Unknown]
